FAERS Safety Report 17008379 (Version 1)
Quarter: 2019Q4

REPORT INFORMATION
  Report Type: Spontaneous
  Country: FR (occurrence: FR)
  Receive Date: 20191108
  Receipt Date: 20191108
  Transmission Date: 20200122
  Serious: Yes (Life-Threatening)
  Sender: FDA-Public Use
  Company Number: FR-TEVA-2019-FR-1134510

PATIENT
  Age: 70 Year
  Sex: Male
  Weight: 125 kg

DRUGS (7)
  1. ADENURIC 80 MG, COMPRIME PELLICULE [Suspect]
     Active Substance: FEBUXOSTAT
     Indication: PRODUCT USED FOR UNKNOWN INDICATION
     Dosage: 1 DOSAGE FORMS
     Route: 048
     Dates: end: 20190925
  2. LASILIX 40 MG, COMPRIME SECABLE [Suspect]
     Active Substance: FUROSEMIDE
     Indication: HYPERTENSION
     Dosage: 1 DOSAGE FORMS
     Route: 048
     Dates: end: 20190925
  3. PREVISCAN 20 MG, COMPRIME SECABLE [Suspect]
     Active Substance: FLUINDIONE
     Indication: CARDIOMYOPATHY
     Dosage: 1.38 DOSAGE FORMS, 1CP - 1/4CP AND 1CP - 1/2CP ALTERNATING
     Route: 048
     Dates: end: 20190925
  4. EUCREAS 50 MG/1000 MG, COMPRIME PELLICULE [Suspect]
     Active Substance: METFORMIN HYDROCHLORIDE\VILDAGLIPTIN
     Indication: TYPE 2 DIABETES MELLITUS
     Dosage: 1 DOSAGE FORMS
     Route: 048
     Dates: end: 20190925
  5. TEMERIT 5 MG, COMPRIME QUADRISECABLE [Suspect]
     Active Substance: NEBIVOLOL HYDROCHLORIDE
     Indication: HYPERTENSION
     Dosage: 1 DOSAGE FORMS
     Route: 048
     Dates: start: 20190925
  6. ATORVASTATINE [Suspect]
     Active Substance: ATORVASTATIN
     Indication: DYSLIPIDAEMIA
     Dosage: 1 DOSAGE FORMS
     Route: 048
     Dates: end: 20190925
  7. METFORMINE [Suspect]
     Active Substance: METFORMIN HYDROCHLORIDE
     Indication: TYPE 2 DIABETES MELLITUS
     Dosage: 1 DOSAGE FORMS
     Route: 048
     Dates: end: 20190925

REACTIONS (4)
  - Haematoma [Not Recovered/Not Resolved]
  - Shock haemorrhagic [Recovered/Resolved]
  - Acute kidney injury [Recovering/Resolving]
  - Blood lactic acid [Recovered/Resolved]

NARRATIVE: CASE EVENT DATE: 20190924
